FAERS Safety Report 15030137 (Version 1)
Quarter: 2018Q2

REPORT INFORMATION
  Report Type: Spontaneous
  Country: US (occurrence: US)
  Receive Date: 20180529
  Receipt Date: 20180529
  Transmission Date: 20180711
  Serious: No
  Sender: FDA-Public Use
  Company Number: None

PATIENT
  Age: 67 Year
  Sex: Male

DRUGS (1)
  1. CAPECITABINE 500 MG TEVA [Suspect]
     Active Substance: CAPECITABINE
     Indication: RECTAL CANCER
     Route: 048
     Dates: start: 20171003, end: 20180508

REACTIONS (3)
  - Skin exfoliation [None]
  - Burning sensation [None]
  - Skin fissures [None]

NARRATIVE: CASE EVENT DATE: 20180401
